FAERS Safety Report 8409765-5 (Version None)
Quarter: 2012Q2

REPORT INFORMATION
  Report Type: 
  Country: None (occurrence: None)
  Receive Date: 20120605
  Receipt Date: 20120524
  Transmission Date: 20120825
  Serious: Yes (Other)
  Sender: FDA-Public Use
  Company Number: BR-JNJFOC-20120520473

PATIENT
  Sex: Female
  Weight: 69.5 kg

DRUGS (6)
  1. PREDNISOLONE [Concomitant]
     Indication: RHEUMATOID ARTHRITIS
     Route: 065
  2. DICLOFENAC SODIUM [Concomitant]
     Indication: RHEUMATOID ARTHRITIS
     Route: 065
  3. FLUOXETINE HCL [Concomitant]
     Indication: DEPRESSION
     Route: 065
  4. REMICADE [Suspect]
     Indication: RHEUMATOID ARTHRITIS
     Route: 042
     Dates: start: 20120524
  5. METHOTREXATE [Suspect]
     Indication: RHEUMATOID ARTHRITIS
     Route: 065
  6. CLONAZEPAM [Concomitant]
     Indication: DEPRESSION
     Route: 065

REACTIONS (5)
  - TACHYCARDIA [None]
  - DYSPNOEA [None]
  - HEADACHE [None]
  - DIZZINESS [None]
  - PAIN [None]
